FAERS Safety Report 9767560 (Version 2)
Quarter: 2015Q3

REPORT INFORMATION
  Report Type: Spontaneous
  Country: US (occurrence: US)
  Receive Date: 20131217
  Receipt Date: 20150731
  Transmission Date: 20151125
  Serious: No
  Sender: FDA-Public Use
  Company Number: US-GILEAD-2009-0024690

PATIENT
  Sex: Male

DRUGS (1)
  1. VIREAD [Suspect]
     Active Substance: TENOFOVIR DISOPROXIL FUMARATE
     Indication: HEPATITIS B

REACTIONS (4)
  - Fatigue [Recovered/Resolved]
  - Peripheral coldness [Recovered/Resolved]
  - Sinus headache [Recovered/Resolved]
  - Musculoskeletal pain [Recovered/Resolved]
